FAERS Safety Report 12929739 (Version 1)
Quarter: 2016Q4

REPORT INFORMATION
  Report Type: Spontaneous
  Country: GB (occurrence: GB)
  Receive Date: 20161110
  Receipt Date: 20161110
  Transmission Date: 20170207
  Serious: Yes (Other)
  Sender: FDA-Public Use
  Company Number: GB-PFIZER INC-2016486171

PATIENT
  Sex: Female

DRUGS (1)
  1. SAYANA PRESS [Suspect]
     Active Substance: MEDROXYPROGESTERONE\MEDROXYPROGESTERONE ACETATE
     Dosage: 104MG/0.65ML, UNK
     Route: 058

REACTIONS (3)
  - Product quality issue [Unknown]
  - Wrong technique in product usage process [Unknown]
  - Presyncope [Recovered/Resolved]
